FAERS Safety Report 6294111-6 (Version None)
Quarter: 2009Q3

REPORT INFORMATION
  Report Type: 
  Country: None (occurrence: None)
  Receive Date: 20090803
  Receipt Date: 20081120
  Transmission Date: 20100115
  Serious: No
  Sender: FDA-Public Use
  Company Number: A0757586A

PATIENT
  Age: 23 Year
  Sex: Female

DRUGS (2)
  1. NICORETTE [Suspect]
     Dates: start: 20081120
  2. NICODERM CQ [Suspect]

REACTIONS (4)
  - APPLICATION SITE PRURITUS [None]
  - APPLICATION SITE REACTION [None]
  - CHEST DISCOMFORT [None]
  - DYSPEPSIA [None]
